FAERS Safety Report 16666201 (Version 1)
Quarter: 2019Q3

REPORT INFORMATION
  Report Type: Spontaneous
  Country: US (occurrence: US)
  Receive Date: 20190805
  Receipt Date: 20190805
  Transmission Date: 20191004
  Serious: Yes (Other)
  Sender: FDA-Public Use
  Company Number: US-ACCORD-091087

PATIENT
  Sex: Female

DRUGS (2)
  1. DOCETAXEL ACCORD [Suspect]
     Active Substance: DOCETAXEL
     Indication: BREAST CANCER
     Dates: start: 201511, end: 201602
  2. METHANOL [Concomitant]
     Active Substance: METHYL ALCOHOL

REACTIONS (1)
  - Alopecia [Not Recovered/Not Resolved]
